FAERS Safety Report 24663435 (Version 2)
Quarter: 2024Q4

REPORT INFORMATION
  Report Type: Spontaneous
  Country: IN (occurrence: IN)
  Receive Date: 20241126
  Receipt Date: 20241209
  Transmission Date: 20250114
  Serious: Yes (Life-Threatening, Other)
  Sender: JUBILANT
  Company Number: None

PATIENT
  Age: 81 Year
  Sex: Male

DRUGS (3)
  1. DONEPEZIL HYDROCHLORIDE [Suspect]
     Active Substance: DONEPEZIL HYDROCHLORIDE
     Indication: Dementia Alzheimer^s type
     Dosage: 5 MG, ONCE PER DAY
     Route: 048
     Dates: start: 202303, end: 2024
  2. DONEPEZIL HYDROCHLORIDE [Suspect]
     Active Substance: DONEPEZIL HYDROCHLORIDE
     Indication: Schizophrenia
  3. MEMANTINE HYDROCHLORIDE [Suspect]
     Active Substance: MEMANTINE HYDROCHLORIDE
     Indication: Dementia Alzheimer^s type
     Dosage: 5 MG, UNK
     Route: 065
     Dates: start: 202307, end: 2024

REACTIONS (1)
  - Atrioventricular block second degree [Recovered/Resolved]

NARRATIVE: CASE EVENT DATE: 20240401
